FAERS Safety Report 23594971 (Version 1)
Quarter: 2024Q1

REPORT INFORMATION
  Report Type: Report from Study
  Country: FR (occurrence: FR)
  Receive Date: 20240305
  Receipt Date: 20240305
  Transmission Date: 20240410
  Serious: Yes (Other)
  Sender: FDA-Public Use
  Company Number: FR-ABBVIE-5662549

PATIENT
  Age: 63 Year
  Sex: Male

DRUGS (7)
  1. RISANKIZUMAB [Suspect]
     Active Substance: RISANKIZUMAB
     Indication: Psoriasis
     Route: 058
     Dates: start: 20210326
  2. RISANKIZUMAB [Suspect]
     Active Substance: RISANKIZUMAB
     Route: 058
     Dates: start: 20210225, end: 20210325
  3. PANTOPRAZOLE [Concomitant]
     Active Substance: PANTOPRAZOLE
     Indication: Gastrointestinal disorder prophylaxis
     Dosage: 40 MILLIGRAM
     Route: 048
     Dates: start: 2019
  4. ATORVASTATIN [Concomitant]
     Active Substance: ATORVASTATIN
     Indication: Dyslipidaemia
     Dosage: 10 MILLIGRAM
     Route: 048
     Dates: start: 2019
  5. TINZAPARIN [Concomitant]
     Active Substance: TINZAPARIN
     Indication: Cerebral ischaemia
     Dosage: 14000.00 IU (INTERNATIONAL UNIT)
     Route: 058
     Dates: start: 20230221, end: 20230314
  6. DOLIPRANE [Concomitant]
     Active Substance: ACETAMINOPHEN
     Indication: Pain prophylaxis
     Dosage: FREQUENCY TEXT: AS NEEDED
     Route: 048
     Dates: start: 20230314
  7. Clopidogrel/acide acetylsalicylique mylan [Concomitant]
     Indication: Thrombosis
     Dosage: 75 MILLIGRAM
     Route: 048
     Dates: start: 20230314

REACTIONS (1)
  - Cataract [Recovered/Resolved]

NARRATIVE: CASE EVENT DATE: 20231215
